FAERS Safety Report 18606633 (Version 1)
Quarter: 2020Q4

REPORT INFORMATION
  Report Type: Spontaneous
  Country: CN (occurrence: CN)
  Receive Date: 20201211
  Receipt Date: 20201211
  Transmission Date: 20210114
  Serious: Yes (Life-Threatening, Hospitalization, Other)
  Sender: FDA-Public Use
  Company Number: CN-JNJFOC-20201215458

PATIENT
  Age: 72 Year
  Sex: Male
  Weight: 72 kg

DRUGS (5)
  1. BAYASPIRIN [Suspect]
     Active Substance: ASPIRIN
     Indication: AORTIC VALVE INCOMPETENCE
  2. BAYASPIRIN [Suspect]
     Active Substance: ASPIRIN
     Indication: AORTIC STENOSIS
     Route: 048
     Dates: start: 20171028, end: 20201019
  3. RIVAROXABAN [Suspect]
     Active Substance: RIVAROXABAN
     Indication: VENOUS THROMBOSIS LIMB
     Dosage: 2.5 MG, BID
     Route: 048
     Dates: start: 20200327, end: 20201019
  4. CLOPIDOGREL HYDROGEN SULFATE [Suspect]
     Active Substance: CLOPIDOGREL BISULFATE
     Indication: AORTIC STENOSIS
     Dosage: 75 MG, QD
     Route: 048
     Dates: start: 20171028, end: 20201019
  5. CLOPIDOGREL HYDROGEN SULFATE [Suspect]
     Active Substance: CLOPIDOGREL BISULFATE
     Indication: AORTIC VALVE INCOMPETENCE

REACTIONS (17)
  - Dizziness [Not Recovered/Not Resolved]
  - Lower gastrointestinal haemorrhage [Not Recovered/Not Resolved]
  - Dyspnoea [Unknown]
  - Blood pressure decreased [Unknown]
  - Off label use [Unknown]
  - Urinary incontinence [Unknown]
  - Contraindicated product administered [Unknown]
  - Product use in unapproved indication [Unknown]
  - Altered state of consciousness [Recovered/Resolved]
  - Myocardial ischaemia [Unknown]
  - Faeces discoloured [Not Recovered/Not Resolved]
  - Chest pain [Unknown]
  - Acute myocardial infarction [Unknown]
  - Altered state of consciousness [Unknown]
  - Labelled drug-drug interaction medication error [Unknown]
  - Chest discomfort [Unknown]
  - Asthenia [Not Recovered/Not Resolved]

NARRATIVE: CASE EVENT DATE: 20171028
